FAERS Safety Report 13227360 (Version 2)
Quarter: 2017Q2

REPORT INFORMATION
  Report Type: Spontaneous
  Country: US (occurrence: US)
  Receive Date: 20170213
  Receipt Date: 20170407
  Transmission Date: 20170830
  Serious: Yes (Other)
  Sender: FDA-Public Use
  Company Number: US-BAYER-2017-025352

PATIENT
  Age: 30 Year
  Sex: Female
  Weight: 72.11 kg

DRUGS (2)
  1. ADDERALL [Concomitant]
     Active Substance: AMPHETAMINE ASPARTATE\AMPHETAMINE SULFATE\DEXTROAMPHETAMINE SACCHARATE\DEXTROAMPHETAMINE SULFATE
     Dosage: 20 MG, QD
     Route: 048
     Dates: start: 20161227
  2. MIRENA [Suspect]
     Active Substance: LEVONORGESTREL
     Indication: CONTRACEPTION
     Dosage: 20 MCG/24HR, CONT
     Route: 015
     Dates: start: 20160927, end: 20170124

REACTIONS (3)
  - Device dislocation [None]
  - Device physical property issue [None]
  - Feeling abnormal [None]

NARRATIVE: CASE EVENT DATE: 20170124
